FAERS Safety Report 4878609-0 (Version None)
Quarter: 2006Q1

REPORT INFORMATION
  Report Type: 
  Country: None (occurrence: None)
  Receive Date: 20060110
  Receipt Date: 20060110
  Transmission Date: 20060701
  Serious: Yes (Hospitalization)
  Sender: FDA-Public Use
  Company Number: None

PATIENT
  Age: 24 Year
  Sex: Female

DRUGS (3)
  1. KADIAN [Suspect]
     Indication: PAIN MANAGEMENT
     Dosage: 160 MG   ONCE   PO
     Route: 048
     Dates: start: 20051114, end: 20051114
  2. KADIAN [Suspect]
     Indication: PERIOPERATIVE ANALGESIA
     Dosage: 160 MG   ONCE   PO
     Route: 048
     Dates: start: 20051114, end: 20051114
  3. KADIAN [Suspect]

REACTIONS (3)
  - LOSS OF CONSCIOUSNESS [None]
  - POST PROCEDURAL COMPLICATION [None]
  - RESPIRATORY DEPRESSION [None]
